FAERS Safety Report 25285584 (Version 2)
Quarter: 2025Q3

REPORT INFORMATION
  Report Type: Spontaneous
  Country: US (occurrence: US)
  Receive Date: 20250509
  Receipt Date: 20250718
  Transmission Date: 20251021
  Serious: No
  Sender: VIIV
  Company Number: US-ViiV Healthcare-123305

PATIENT
  Sex: Female

DRUGS (1)
  1. TRIUMEQ [Suspect]
     Active Substance: ABACAVIR SULFATE\DOLUTEGRAVIR SODIUM\LAMIVUDINE
     Indication: Product used for unknown indication

REACTIONS (5)
  - Viral load increased [Unknown]
  - Product preparation error [Unknown]
  - Product administration error [Unknown]
  - Incorrect dose administered [Unknown]
  - Off label use [Unknown]
